FAERS Safety Report 20650548 (Version 1)
Quarter: 2022Q1

REPORT INFORMATION
  Report Type: Spontaneous
  Country: FR (occurrence: FR)
  Receive Date: 20220329
  Receipt Date: 20220329
  Transmission Date: 20220423
  Serious: Yes (Other)
  Sender: FDA-Public Use
  Company Number: None

PATIENT
  Age: 50 Year
  Sex: Female

DRUGS (5)
  1. CLARITHROMYCIN [Suspect]
     Active Substance: CLARITHROMYCIN
     Indication: Helicobacter infection
     Dosage: DURATION: 1 MONTH
     Route: 048
     Dates: start: 202105, end: 202106
  2. PANTOPRAZOLE [Suspect]
     Active Substance: PANTOPRAZOLE
     Indication: Helicobacter infection
     Dosage: DURATION: 1 MONTH
     Route: 048
     Dates: start: 202105, end: 202106
  3. ESOMEPRAZOLE [Suspect]
     Active Substance: ESOMEPRAZOLE
     Indication: Helicobacter infection
     Dosage: DURATION: 1 MONTH
     Route: 048
     Dates: start: 202105, end: 202106
  4. AMOXICILLIN SODIUM [Suspect]
     Active Substance: AMOXICILLIN SODIUM
     Indication: Helicobacter infection
     Dosage: DOSAGE NOT KNOWN; DURATION: 1 MONTH
     Route: 048
     Dates: start: 202105, end: 202106
  5. FLAGYL [Suspect]
     Active Substance: METRONIDAZOLE\METRONIDAZOLE HYDROCHLORIDE
     Indication: Helicobacter infection
     Dosage: DURATION: 1 MONTH
     Route: 048
     Dates: start: 202105, end: 202106

REACTIONS (5)
  - Oedema [Recovered/Resolved]
  - Dyspnoea [Recovered/Resolved]
  - Diarrhoea [Recovered/Resolved]
  - Rash erythematous [Not Recovered/Not Resolved]
  - Dysphagia [Recovered/Resolved]

NARRATIVE: CASE EVENT DATE: 20210501
